FAERS Safety Report 23498602 (Version 1)
Quarter: 2024Q1

REPORT INFORMATION
  Report Type: Spontaneous
  Country: CN (occurrence: CN)
  Receive Date: 20240207
  Receipt Date: 20240207
  Transmission Date: 20240410
  Serious: Yes (Hospitalization, Other)
  Sender: FDA-Public Use
  Company Number: CN-009507513-2402CHN001979

PATIENT
  Age: 81 Year
  Sex: Male
  Weight: 65 kg

DRUGS (1)
  1. CILASTATIN SODIUM\IMIPENEM [Suspect]
     Active Substance: CILASTATIN SODIUM\IMIPENEM
     Indication: Infection
     Dosage: 1G, BID
     Route: 041
     Dates: start: 20240123, end: 20240131

REACTIONS (4)
  - Hepatic function abnormal [Recovering/Resolving]
  - Palpitations [Recovering/Resolving]
  - Mechanical ventilation [Unknown]
  - Inappropriate schedule of product administration [Unknown]

NARRATIVE: CASE EVENT DATE: 20240123
